FAERS Safety Report 4874060-8 (Version None)
Quarter: 2005Q4

REPORT INFORMATION
  Report Type: 
  Country: None (occurrence: None)
  Receive Date: 20051201
  Receipt Date: 20050804
  Transmission Date: 20060501
  Serious: No
  Sender: FDA-Public Use
  Company Number: 2005PV000951

PATIENT
  Age: 75 Year
  Sex: Female
  Weight: 76.2043 kg

DRUGS (14)
  1. BYETTA [Suspect]
     Indication: DIABETES MELLITUS NON-INSULIN-DEPENDENT
     Dosage: 5 MCG, BID, SC
     Route: 058
     Dates: start: 20050715
  2. SYNTHROID [Concomitant]
  3. AVAPRO [Concomitant]
  4. ACTOS ^LILLY^ [Concomitant]
  5. GLUCOVANCE [Concomitant]
  6. BUMEX [Concomitant]
  7. VASOTEC RPD [Concomitant]
  8. TOPROL-XL [Concomitant]
  9. K-DUR 10 [Concomitant]
  10. DYNACIRC [Concomitant]
  11. CLARINEX [Concomitant]
  12. PEPCID AC [Concomitant]
  13. ECOTRIN [Concomitant]
  14. ACIDOPHILUS [Concomitant]

REACTIONS (4)
  - DECREASED APPETITE [None]
  - DIARRHOEA [None]
  - TREMOR [None]
  - VOMITING [None]
